FAERS Safety Report 5832860-1 (Version None)
Quarter: 2008Q3

REPORT INFORMATION
  Report Type: 
  Country: None (occurrence: None)
  Receive Date: 20080804
  Receipt Date: 20080723
  Transmission Date: 20090109
  Serious: Yes (Other)
  Sender: FDA-Public Use
  Company Number: JP-PFIZER INC-2008062390

PATIENT
  Age: 24 Year
  Sex: Male

DRUGS (6)
  1. IDAMYCIN [Suspect]
     Indication: ACUTE PROMYELOCYTIC LEUKAEMIA
     Dosage: DAILY DOSE:12MG/M2
     Route: 042
  2. PRODIF [Interacting]
     Dosage: DAILY DOSE:504.5MG
     Route: 042
  3. TRETINOIN [Concomitant]
  4. CYTARABINE [Concomitant]
  5. CEFEPIME [Concomitant]
  6. GRANULOCYTE MACROPHAGE COLONY STIM FACTOR [Concomitant]

REACTIONS (2)
  - DRUG INTERACTION [None]
  - HYPERCALCAEMIA [None]
